FAERS Safety Report 21644722 (Version 2)
Quarter: 2023Q1

REPORT INFORMATION
  Report Type: Spontaneous
  Country: US (occurrence: US)
  Receive Date: 20221125
  Receipt Date: 20230106
  Transmission Date: 20230418
  Serious: Yes (Other)
  Sender: FDA-Public Use
  Company Number: US-ORGANON-O2211USA002123

PATIENT
  Age: 20 Year
  Sex: Female

DRUGS (2)
  1. NEXPLANON [Suspect]
     Active Substance: ETONOGESTREL
     Dosage: 1 IMPANT IN INNER LEFT ARM
     Route: 059
     Dates: start: 20191118, end: 20221118
  2. NEXPLANON [Suspect]
     Active Substance: ETONOGESTREL
     Dosage: 1 IMPLANT IN INNER LEFT ARM
     Route: 059
     Dates: start: 20221118

REACTIONS (9)
  - Device expulsion [Unknown]
  - Implant site haemorrhage [Unknown]
  - Contusion [Recovered/Resolved]
  - Contusion [Unknown]
  - Implant site fibrosis [Unknown]
  - Implant site swelling [Unknown]
  - Implant site swelling [Unknown]
  - Complication of device removal [Recovered/Resolved]
  - Complication associated with device [Not Recovered/Not Resolved]

NARRATIVE: CASE EVENT DATE: 20191101
